FAERS Safety Report 6196680-3 (Version None)
Quarter: 2009Q2

REPORT INFORMATION
  Report Type: 
  Country: None (occurrence: None)
  Receive Date: 20090520
  Receipt Date: 20090515
  Transmission Date: 20091009
  Serious: Yes (Death)
  Sender: FDA-Public Use
  Company Number: Z0000938A

PATIENT
  Age: 51 Year
  Sex: Male
  Weight: 116 kg

DRUGS (5)
  1. TOPOTECAN [Suspect]
     Dosage: 2.3MGM2 CYCLIC
     Route: 048
     Dates: start: 20090225, end: 20090503
  2. BEVACIZUMAB [Suspect]
     Dosage: 15MGK CYCLIC
     Route: 042
     Dates: start: 20090225, end: 20090429
  3. ALBUTEROL [Concomitant]
     Indication: CHRONIC OBSTRUCTIVE PULMONARY DISEASE
     Dosage: .09MG AS REQUIRED
     Route: 055
     Dates: start: 20090401
  4. MORPHINE SULFATE [Concomitant]
     Indication: PAIN
     Dosage: 60MG TWICE PER DAY
     Route: 048
     Dates: start: 20081009
  5. XANAX [Concomitant]
     Indication: ANXIETY
     Dosage: .5MG PER DAY
     Route: 048
     Dates: start: 20081009

REACTIONS (6)
  - ANAEMIA [None]
  - DYSPNOEA [None]
  - GASTROINTESTINAL HAEMORRHAGE [None]
  - MENTAL STATUS CHANGES [None]
  - RESPIRATORY ARREST [None]
  - THROMBOCYTOPENIA [None]
